FAERS Safety Report 9899458 (Version 1)
Quarter: 2014Q1

REPORT INFORMATION
  Report Type: Spontaneous
  Country: FR (occurrence: FR)
  Receive Date: 20140214
  Receipt Date: 20140214
  Transmission Date: 20141002
  Serious: Yes (Hospitalization)
  Sender: FDA-Public Use
  Company Number: FR-PFIZER INC-2014043073

PATIENT
  Age: 54 Year
  Sex: Female

DRUGS (17)
  1. CISPLATIN [Suspect]
     Dosage: 1 DF, WEEKLY
     Route: 042
     Dates: start: 20131206
  2. FLUOROURACIL [Suspect]
     Dosage: 1 DF, WEEKLY
     Route: 042
     Dates: start: 20131206
  3. SPASFON [Suspect]
     Dosage: 40 MG, 3X/DAY
     Route: 042
     Dates: start: 201312
  4. VOGALENE [Suspect]
     Dosage: 1 DF, 3X/DAY
     Route: 048
     Dates: start: 201312
  5. ERBITUX [Suspect]
     Dosage: 355 MG, WEEKLY
     Route: 042
     Dates: start: 20131206
  6. METHYLPREDNISOLONE [Suspect]
     Dosage: 44 MG, WEEKLY
     Route: 042
     Dates: start: 20131206
  7. POLARAMINE [Suspect]
     Dosage: 1 DF, WEEKLY
     Route: 042
     Dates: start: 20131206
  8. NEFOPAM [Suspect]
     Dosage: 1 DF, 4X/DAY
     Route: 042
     Dates: start: 201312
  9. TOPALGIC [Suspect]
     Dosage: 1 DF, 3X/DAY
     Route: 042
     Dates: start: 20140103
  10. PANTOPRAZOLE [Suspect]
     Dosage: 1 DF, 1X/DAY
     Route: 042
     Dates: start: 201312
  11. DOXYCYCLINE [Suspect]
     Dosage: 1 DF, 1X/DAY
     Route: 048
     Dates: start: 201312
  12. HYDROXYZINE [Suspect]
     Dosage: 1 DF, 1X/DAY
     Route: 042
     Dates: start: 201312
  13. TIORFAN [Suspect]
     Dosage: 1 DF, 3X/DAY
     Route: 048
     Dates: start: 20140103
  14. SMECTA [Suspect]
     Dosage: 1 DF, 3X/DAY
     Route: 048
     Dates: start: 201312
  15. OXYNORM [Suspect]
     Dosage: UNK
     Route: 042
     Dates: start: 201312
  16. EMEND [Suspect]
     Dosage: 1 DF, WEEKLY
     Route: 048
     Dates: start: 20131206
  17. ZOPHREN [Suspect]
     Dosage: 1 DF, WEEKLY
     Dates: start: 20131206

REACTIONS (2)
  - Pancreatitis acute [Not Recovered/Not Resolved]
  - Lipase increased [Not Recovered/Not Resolved]
